FAERS Safety Report 24197299 (Version 3)
Quarter: 2025Q1

REPORT INFORMATION
  Report Type: Spontaneous
  Country: US (occurrence: US)
  Receive Date: 20240810
  Receipt Date: 20250115
  Transmission Date: 20250409
  Serious: Yes (Hospitalization)
  Sender: SANOFI AVENTIS
  Company Number: US-SA-SAC20240807000049

PATIENT
  Age: 40 Year
  Sex: Female

DRUGS (1)
  1. DUPIXENT [Suspect]
     Active Substance: DUPILUMAB
     Indication: Asthma
     Dosage: 300 MG, QOW
     Route: 058
     Dates: start: 20240516

REACTIONS (3)
  - Abdominal discomfort [Recovering/Resolving]
  - Eosinophil count increased [Recovering/Resolving]
  - Gastric pH decreased [Recovering/Resolving]

NARRATIVE: CASE EVENT DATE: 20240101
